FAERS Safety Report 18448256 (Version 1)
Quarter: 2020Q4

REPORT INFORMATION
  Report Type: Spontaneous
  Country: ES (occurrence: ES)
  Receive Date: 20201031
  Receipt Date: 20201031
  Transmission Date: 20210114
  Serious: Yes (Hospitalization)
  Sender: FDA-Public Use
  Company Number: ES-TEVA-2020-ES-1842369

PATIENT
  Age: 81 Year
  Sex: Female

DRUGS (1)
  1. LISINOPRIL / HIDROCLOROTIAZIDA RATIOPHARM 20 / 12,5 MG COMPRIMIDOS EFG [Suspect]
     Active Substance: HYDROCHLOROTHIAZIDE\LISINOPRIL
     Indication: HYPERTENSION
     Dosage: 1 DOSAGE FORMS DAILY; 20 / 12.5 MG ONCE DAILY:UNIT DOSE:1DOSAGEFORM
     Route: 048
     Dates: start: 20200820, end: 20200926

REACTIONS (2)
  - Bradyphrenia [Recovered/Resolved]
  - Hyponatraemia [Recovered/Resolved]

NARRATIVE: CASE EVENT DATE: 20200923
